FAERS Safety Report 9164890 (Version 1)
Quarter: 2013Q1

REPORT INFORMATION
  Report Type: Spontaneous
  Country: US (occurrence: US)
  Receive Date: 20130315
  Receipt Date: 20130315
  Transmission Date: 20140127
  Serious: No
  Sender: FDA-Public Use
  Company Number: US-MYLANLABS-2012S1024726

PATIENT
  Age: 85 Year
  Sex: Female

DRUGS (8)
  1. CLOPIDOGREL TABLETS USP [Suspect]
     Indication: STENT PLACEMENT
     Route: 048
     Dates: start: 20121113
  2. CLOPIDOGREL TABLETS USP [Suspect]
     Indication: CARDIAC PACEMAKER INSERTION
     Route: 048
     Dates: start: 20121113
  3. ASPIRIN [Suspect]
     Indication: STENT PLACEMENT
     Route: 048
     Dates: end: 201211
  4. ASPIRIN [Suspect]
     Indication: CARDIAC PACEMAKER INSERTION
     Route: 048
     Dates: end: 201211
  5. CARVEDILOL [Concomitant]
     Indication: CARDIAC DISORDER
  6. LEVOTHYROXINE [Concomitant]
     Indication: HYPOTHYROIDISM
  7. LASIX [Concomitant]
     Indication: FLUID RETENTION
  8. OXYGEN [Concomitant]
     Dosage: VIA NASAL CANNULA -AT NIGHT

REACTIONS (3)
  - Coagulation time shortened [Recovered/Resolved]
  - Epistaxis [Recovered/Resolved]
  - Increased tendency to bruise [Recovered/Resolved]
